FAERS Safety Report 20098382 (Version 1)
Quarter: 2021Q4

REPORT INFORMATION
  Report Type: Spontaneous
  Country: US (occurrence: US)
  Receive Date: 20211122
  Receipt Date: 20211122
  Transmission Date: 20220303
  Serious: Yes (Hospitalization)
  Sender: FDA-Public Use
  Company Number: US-PROCTER_AND_GAMBLE-PH21010424

PATIENT
  Age: 44 Year
  Sex: Female

DRUGS (1)
  1. ALCOHOL ANTIBACTERIAL GEL(NONE-RINSE) [Suspect]
     Active Substance: ALCOHOL

REACTIONS (7)
  - Mental status changes [Recovering/Resolving]
  - Overdose [Unknown]
  - Somnolence [Unknown]
  - Blood ketone body increased [Unknown]
  - Blood isopropanol increased [Unknown]
  - Incorrect route of product administration [None]
  - Exposure via ingestion [Unknown]
